FAERS Safety Report 25198738 (Version 1)
Quarter: 2025Q2

REPORT INFORMATION
  Report Type: Spontaneous
  Country: US (occurrence: None)
  Receive Date: 20250414
  Receipt Date: 20250414
  Transmission Date: 20250716
  Serious: Yes (Death, Hospitalization)
  Sender: FDA-CTU
  Company Number: None

PATIENT
  Age: 76 Year
  Sex: Male

DRUGS (1)
  1. POMALYST [Suspect]
     Active Substance: POMALIDOMIDE
     Indication: Plasma cell myeloma
     Dosage: FREQUENCY : DAILY;?
     Route: 048
     Dates: start: 20250109, end: 20250117

REACTIONS (8)
  - Dyspnoea [None]
  - Dyspnoea exertional [None]
  - Chest pain [None]
  - Renal disorder [None]
  - Cardiac disorder [None]
  - Heart failure with preserved ejection fraction [None]
  - Cardiac failure congestive [None]
  - Cardiomyopathy [None]

NARRATIVE: CASE EVENT DATE: 20250116
